FAERS Safety Report 6887972-0 (Version None)
Quarter: 2010Q3

REPORT INFORMATION
  Report Type: 
  Country: None (occurrence: None)
  Receive Date: 20100730
  Receipt Date: 20100720
  Transmission Date: 20110219
  Serious: Yes (Death, Hospitalization)
  Sender: FDA-Public Use
  Company Number: A0867095A

PATIENT
  Age: 35 Year
  Sex: Male
  Weight: 100.5 kg

DRUGS (6)
  1. AVANDIA [Suspect]
     Route: 048
     Dates: start: 19980101, end: 20040101
  2. AVANDAMET [Suspect]
     Route: 048
     Dates: start: 20030807
  3. STARLIX [Concomitant]
  4. AVALIDE [Concomitant]
  5. LIPITOR [Concomitant]
  6. NAPROSYN [Concomitant]

REACTIONS (6)
  - CARDIAC ARREST [None]
  - CARDIAC FAILURE [None]
  - CONVULSION [None]
  - DIABETES MELLITUS [None]
  - ISCHAEMIC STROKE [None]
  - MYOCARDIAL INFARCTION [None]
